FAERS Safety Report 15646343 (Version 4)
Quarter: 2019Q1

REPORT INFORMATION
  Report Type: Report from Study
  Country: CA (occurrence: CA)
  Receive Date: 20181122
  Receipt Date: 20190121
  Transmission Date: 20190417
  Serious: Yes (Hospitalization)
  Sender: FDA-Public Use
  Company Number: CA-ROCHE-2218189

PATIENT
  Age: 53 Year
  Sex: Male

DRUGS (3)
  1. IMODIUM [Concomitant]
     Active Substance: LOPERAMIDE HYDROCHLORIDE
     Dosage: AS NEEDED
     Route: 065
     Dates: start: 20171225
  2. VEMURAFENIB. [Suspect]
     Active Substance: VEMURAFENIB
     Indication: MALIGNANT MELANOMA
     Dosage: ROUTE, DOSE AND FREQUENCY AS PER PROTOCOL?DATE OF LAST DOSE OF 720 MG PRIOR TO EVENT: 12/NOV/2018
     Route: 048
     Dates: start: 20171211
  3. COBIMETINIB. [Suspect]
     Active Substance: COBIMETINIB
     Indication: MALIGNANT MELANOMA
     Dosage: ROUTE AND FREQUENCY AS PER PROTOCOL?DATE OF LAST DOSE PRIOR TO EVENT: 12/NOV/2018
     Route: 048
     Dates: start: 20171211

REACTIONS (1)
  - Pyrexia [Recovered/Resolved]

NARRATIVE: CASE EVENT DATE: 20181116
